FAERS Safety Report 8538891-5 (Version None)
Quarter: 2012Q3

REPORT INFORMATION
  Report Type: 
  Country: None (occurrence: None)
  Receive Date: 20120716
  Receipt Date: 20120704
  Transmission Date: 20120928
  Serious: Yes (Death)
  Sender: FDA-Public Use
  Company Number: DSA_58348_2012

PATIENT
  Age: 75 Year
  Sex: Male

DRUGS (4)
  1. FLUOROURACIL [Suspect]
     Indication: OESOPHAGEAL CARCINOMA
     Dosage: DF
  2. DOCETAXEL [Suspect]
     Indication: OESOPHAGEAL CARCINOMA
     Dosage: 15 MG, WEEKLY
  3. THERAPEUTIC RADIOPHARMACEUTICALS  (THERAPEUTIC RADIOPHARMACEUTICALS) [Concomitant]
     Indication: OESOPHAGEAL CARCINOMA
     Dosage: 15 MG, WEEKLY
  4. CISPLATIN [Suspect]
     Indication: OESOPHAGEAL CARCINOMA
     Dosage: DF

REACTIONS (16)
  - PNEUMONIA [None]
  - INTERSTITIAL LUNG DISEASE [None]
  - ACINETOBACTER TEST POSITIVE [None]
  - HYPOALBUMINAEMIA [None]
  - BACTERIAL INFECTION [None]
  - ENTEROCOCCUS TEST POSITIVE [None]
  - HISTIOCYTOSIS HAEMATOPHAGIC [None]
  - STENOTROPHOMONAS TEST POSITIVE [None]
  - RESPIRATORY FAILURE [None]
  - STUPOR [None]
  - BRONCHOPULMONARY ASPERGILLOSIS [None]
  - COAGULOPATHY [None]
  - FUNGAL INFECTION [None]
  - FEBRILE NEUTROPENIA [None]
  - WHITE BLOOD CELL COUNT DECREASED [None]
  - PLATELET COUNT DECREASED [None]
